FAERS Safety Report 14157261 (Version 1)
Quarter: 2017Q4

REPORT INFORMATION
  Report Type: Report from Study
  Country: US (occurrence: US)
  Receive Date: 20171103
  Receipt Date: 20171103
  Transmission Date: 20180321
  Serious: Yes (Hospitalization)
  Sender: FDA-Public Use
  Company Number: US-PFIZER INC-2017469542

PATIENT
  Age: 75 Year
  Sex: Female
  Weight: 101.1 kg

DRUGS (2)
  1. LASIX [Concomitant]
     Active Substance: FUROSEMIDE
     Indication: WEIGHT INCREASED
     Dosage: 40 MG, ONCE
     Route: 042
     Dates: start: 20170919, end: 20170919
  2. INOTUZUMAB OZOGAMICIN [Suspect]
     Active Substance: INOTUZUMAB OZOGAMICIN
     Dosage: 0.8 MG/M2, DAY1,8,15
     Route: 042
     Dates: start: 20170901, end: 20170908

REACTIONS (2)
  - Ascites [Not Recovered/Not Resolved]
  - Portal hypertension [Not Recovered/Not Resolved]

NARRATIVE: CASE EVENT DATE: 20171003
